FAERS Safety Report 15009923 (Version 1)
Quarter: 2018Q2

REPORT INFORMATION
  Report Type: Spontaneous
  Country: GB (occurrence: GB)
  Receive Date: 20180614
  Receipt Date: 20180614
  Transmission Date: 20180711
  Serious: Yes (Other)
  Sender: FDA-Public Use
  Company Number: GB-TEVA-2018-GB-906227

PATIENT
  Age: 56 Year
  Sex: Female
  Weight: 68.48 kg

DRUGS (1)
  1. SERTRALINE [Suspect]
     Active Substance: SERTRALINE HYDROCHLORIDE
     Indication: ANXIETY
     Dosage: 50 MILLIGRAM DAILY;
     Route: 048
     Dates: start: 20180309

REACTIONS (3)
  - Back pain [Unknown]
  - Abdominal pain upper [Unknown]
  - Postmenopausal haemorrhage [Unknown]

NARRATIVE: CASE EVENT DATE: 20180414
